FAERS Safety Report 21688085 (Version 1)
Quarter: 2022Q4

REPORT INFORMATION
  Report Type: Spontaneous
  Country: US (occurrence: US)
  Receive Date: 20221206
  Receipt Date: 20221206
  Transmission Date: 20230112
  Serious: Yes (Hospitalization)
  Sender: FDA-Public Use
  Company Number: US-MYLANLABS-2022M1136480

PATIENT
  Age: 53 Year
  Sex: Female

DRUGS (2)
  1. VANCOMYCIN [Suspect]
     Active Substance: VANCOMYCIN
     Indication: Escherichia bacteraemia
     Dosage: 2 GRAM, BID; INTRAVENOUS (NOT SPECIFIED)
     Route: 042
  2. CEFEPIME [Concomitant]
     Active Substance: CEFEPIME HYDROCHLORIDE
     Indication: Escherichia bacteraemia
     Dosage: 2 GRAM, Q8H; INTRAVENOUS (NOT SPECIFIED)
     Route: 042

REACTIONS (1)
  - Drug ineffective [Unknown]
